FAERS Safety Report 15118204 (Version 1)
Quarter: 2018Q3

REPORT INFORMATION
  Report Type: Spontaneous
  Country: CN (occurrence: CN)
  Receive Date: 20180707
  Receipt Date: 20180707
  Transmission Date: 20181010
  Serious: Yes (Hospitalization)
  Sender: FDA-Public Use
  Company Number: CN-JNJFOC-20180639139

PATIENT

DRUGS (2)
  1. ACETAMINOPHEN. [Suspect]
     Active Substance: ACETAMINOPHEN
     Indication: PRODUCT USED FOR UNKNOWN INDICATION
     Dosage: SINGLE DOSE OF PARACETAMOL REACHING 150MG/KG
     Route: 065
  2. ACETAMINOPHEN. [Suspect]
     Active Substance: ACETAMINOPHEN
     Route: 065

REACTIONS (12)
  - Vomiting [Unknown]
  - International normalised ratio abnormal [Unknown]
  - Blood cholinesterase decreased [Unknown]
  - Hypotension [Unknown]
  - Overdose [Unknown]
  - Nausea [Unknown]
  - Toxicity to various agents [Unknown]
  - Rash [Unknown]
  - Aspartate aminotransferase increased [Unknown]
  - Alanine aminotransferase abnormal [Unknown]
  - Discomfort [Unknown]
  - Liver injury [Unknown]
